FAERS Safety Report 10472978 (Version 1)
Quarter: 2014Q3

REPORT INFORMATION
  Report Type: Spontaneous
  Country: DK (occurrence: DK)
  Receive Date: 20140924
  Receipt Date: 20140924
  Transmission Date: 20150326
  Serious: Yes (Hospitalization)
  Sender: FDA-Public Use
  Company Number: PHHY2014DK121176

PATIENT
  Age: 26 Year
  Sex: Female

DRUGS (1)
  1. TRIMINETTA [Suspect]
     Active Substance: ETHINYL ESTRADIOL\LEVONORGESTREL
     Indication: CONTRACEPTION
     Route: 048

REACTIONS (6)
  - Cerebral thrombosis [Recovered/Resolved]
  - Hemiparesis [Recovered/Resolved]
  - Memory impairment [Unknown]
  - Transient ischaemic attack [None]
  - Chest pain [Recovered/Resolved]
  - Disturbance in attention [Unknown]

NARRATIVE: CASE EVENT DATE: 201204
